FAERS Safety Report 16468898 (Version 7)
Quarter: 2021Q1

REPORT INFORMATION
  Report Type: Spontaneous
  Country: US (occurrence: US)
  Receive Date: 20190624
  Receipt Date: 20210126
  Transmission Date: 20210419
  Serious: No
  Sender: FDA-Public Use
  Company Number: US-PFIZER INC-2016238763

PATIENT
  Age: 83 Year
  Sex: Female
  Weight: 113 kg

DRUGS (3)
  1. LYRICA [Suspect]
     Active Substance: PREGABALIN
     Dosage: 1 DF, 1X/DAY (ONE A DAY)
  2. LYRICA [Suspect]
     Active Substance: PREGABALIN
     Indication: SENSORY NEUROPATHY HEREDITARY
     Dosage: 75 MG, 3X/DAY
     Route: 048
     Dates: start: 2008
  3. LYRICA [Suspect]
     Active Substance: PREGABALIN
     Indication: NEUROPATHY PERIPHERAL
     Dosage: 225 MG, DAILY [ONE 75MG CAPSULE IN THE MORNING, TWO 75MG CAPSULES AT NIGHT]
     Route: 048

REACTIONS (5)
  - Intentional product misuse [Unknown]
  - Pain [Unknown]
  - Anxiety [Unknown]
  - Blood pressure increased [Unknown]
  - Insomnia [Unknown]
